FAERS Safety Report 9290744 (Version 2)
Quarter: 2013Q4

REPORT INFORMATION
  Report Type: Spontaneous
  Country: US (occurrence: US)
  Receive Date: 20130515
  Receipt Date: 20131104
  Transmission Date: 20140711
  Serious: Yes (Hospitalization)
  Sender: FDA-Public Use
  Company Number: US-B.I. PHARMACEUTICALS,INC./RIDGEFIELD-2013-BI-13299BP

PATIENT
  Age: 73 Year
  Sex: Male
  Weight: 99.97 kg

DRUGS (23)
  1. PRADAXA [Suspect]
     Indication: ANTICOAGULANT THERAPY
     Dosage: 150 MG
     Route: 048
     Dates: start: 20120214, end: 20120310
  2. PRADAXA [Suspect]
     Indication: ATRIAL FIBRILLATION
     Dosage: 150 MG
     Route: 048
     Dates: start: 20120419, end: 20120429
  3. AMIODARONE [Concomitant]
     Indication: ATRIAL FIBRILLATION
     Dosage: 200 MG
     Route: 048
     Dates: start: 201203
  4. PLAVIX [Concomitant]
     Dosage: 75 MG
  5. ASPIRIN [Concomitant]
     Dosage: 81 MG
  6. COMBIVENT [Concomitant]
     Dosage: 4 PUF
     Route: 055
  7. COREG [Concomitant]
     Dosage: 6.25 MG
  8. CRESTOR [Concomitant]
     Dosage: 20 MG
  9. DUONEB [Concomitant]
     Route: 055
  10. FOLIC ACID [Concomitant]
     Dosage: 1 MG
  11. GUAIFENESIN [Concomitant]
     Dosage: 800 MG
     Route: 048
  12. KLOR-CON [Concomitant]
     Dosage: 20 MEQ
  13. LASIX [Concomitant]
     Dosage: 40 MG
  14. LISINOPRIL [Concomitant]
     Dosage: 10 MG
  15. LORTAB [Concomitant]
     Indication: PAIN IN EXTREMITY
  16. MULTIVITAMIN [Concomitant]
  17. NEURONTIN [Concomitant]
     Dosage: 200 MG
  18. NIACIN [Concomitant]
     Dosage: 1500 MG
  19. PROTONIX [Concomitant]
     Dosage: 40 MG
  20. UROXATRAL [Concomitant]
     Dosage: 10 MG
  21. ZETIA [Concomitant]
     Dosage: 10 MG
  22. ZOLOFT [Concomitant]
     Dosage: 25 MG
  23. NITROGLYCERIN [Concomitant]

REACTIONS (7)
  - Gastrointestinal haemorrhage [Unknown]
  - Anaemia [Unknown]
  - Angina unstable [Unknown]
  - Atrial fibrillation [Recovered/Resolved]
  - Implant site haemorrhage [Recovered/Resolved]
  - Implant site haematoma [Recovered/Resolved]
  - Contusion [Unknown]
